FAERS Safety Report 7773094-3 (Version None)
Quarter: 2011Q3

REPORT INFORMATION
  Report Type: 
  Country: None (occurrence: None)
  Receive Date: 20110922
  Receipt Date: 20100826
  Transmission Date: 20111222
  Serious: No
  Sender: FDA-Public Use
  Company Number: US-ASTRAZENECA-2007UW25115

PATIENT
  Age: 50 Year
  Sex: Male
  Weight: 86.2 kg

DRUGS (5)
  1. SEROQUEL [Suspect]
     Indication: DEPRESSION
     Dosage: 25 MG TO 50 MG
     Route: 048
     Dates: start: 20040101, end: 20061101
  2. SEROQUEL [Suspect]
     Indication: PANIC ATTACK
     Dosage: 25 MG TO 50 MG
     Route: 048
     Dates: start: 20040101, end: 20061101
  3. SEROQUEL [Suspect]
     Indication: ANXIETY
     Dosage: 25 MG TO 50 MG
     Route: 048
     Dates: start: 20040101, end: 20061101
  4. SEROQUEL [Suspect]
     Indication: BIPOLAR DISORDER
     Dosage: 25 MG TO 50 MG
     Route: 048
     Dates: start: 20040101, end: 20061101
  5. CLOZAPINE [Concomitant]
     Dates: start: 20060101

REACTIONS (9)
  - BLOOD CHOLESTEROL INCREASED [None]
  - VISUAL ACUITY REDUCED [None]
  - DIABETIC COMPLICATION [None]
  - HYPOAESTHESIA [None]
  - TYPE 2 DIABETES MELLITUS [None]
  - DIABETES MELLITUS [None]
  - HYPERLIPIDAEMIA [None]
  - BLOOD TRIGLYCERIDES INCREASED [None]
  - OBESITY [None]
